FAERS Safety Report 26118021 (Version 2)
Quarter: 2025Q4

REPORT INFORMATION
  Report Type: Spontaneous
  Country: US (occurrence: US)
  Receive Date: 20251203
  Receipt Date: 20251210
  Transmission Date: 20260117
  Serious: Yes (Other)
  Sender: PFIZER
  Company Number: US-MLMSERVICE-20251121-PI721954-00138-1

PATIENT
  Age: 24 Year
  Sex: Female

DRUGS (3)
  1. ESTRADIOL CYPIONATE [Suspect]
     Active Substance: ESTRADIOL CYPIONATE
     Indication: Hormone therapy
     Dosage: 8 MG, WEEKLY (1 YEAR PRIOR TO PRESENTATION)
     Route: 030
  2. ESTRADIOL [Suspect]
     Active Substance: ESTRADIOL
     Indication: Hormone therapy
     Dosage: UNK (FOR 3 YEARS)
     Route: 048
  3. PROGESTERONE [Suspect]
     Active Substance: PROGESTERONE
     Indication: Hormone therapy
     Dosage: 100 MG, 1X/DAY (FOR 10 MONTHS)

REACTIONS (2)
  - Phyllodes tumour [Unknown]
  - Off label use [Unknown]
